FAERS Safety Report 5457776-4 (Version None)
Quarter: 2007Q3

REPORT INFORMATION
  Report Type: 
  Country: None (occurrence: None)
  Receive Date: 20070917
  Receipt Date: 20070905
  Transmission Date: 20080115
  Serious: Yes (Hospitalization)
  Sender: FDA-Public Use
  Company Number: M7002-00623-CLI-US

PATIENT
  Age: 64 Year
  Sex: Female
  Weight: 55 kg

DRUGS (7)
  1. ONTAK [Suspect]
     Indication: PANNICULITIS
     Dosage: 896 MCG, INTRAVENOUS INFUSION
     Route: 042
     Dates: start: 20070828
  2. PREDNISONE TAB [Concomitant]
  3. AZATHIOPRINE [Concomitant]
  4. SYNTHROID [Concomitant]
  5. SYNTHROID [Concomitant]
  6. ALLOPURINOL [Concomitant]
  7. ACYCLOVIR [Concomitant]

REACTIONS (1)
  - FEBRILE NEUTROPENIA [None]
